FAERS Safety Report 5971617-8 (Version None)
Quarter: 2008Q4

REPORT INFORMATION
  Report Type: 
  Country: None (occurrence: None)
  Receive Date: 20081201
  Receipt Date: 20081117
  Transmission Date: 20090506
  Serious: Yes (Life-Threatening, Hospitalization)
  Sender: FDA-Public Use
  Company Number: AT-PURDUE-DEU_2008_0004732

PATIENT
  Age: 15 Year
  Sex: Female

DRUGS (4)
  1. OPIOIDS [Suspect]
  2. BENZODIAZEPINE DERIVATIVES [Suspect]
  3. MORPHINE [Suspect]
     Indication: DRUG ABUSE
     Dosage: UNK, SEE TEXT
     Route: 048
     Dates: start: 20081001
  4. HYPNOTICS AND SEDATIVES [Suspect]
     Indication: DRUG ABUSE
     Route: 065

REACTIONS (13)
  - APNOEA [None]
  - CARDIOVASCULAR INSUFFICIENCY [None]
  - COUGH [None]
  - DEHYDRATION [None]
  - DRUG ABUSE [None]
  - DRUG DEPENDENCE [None]
  - DYSPNOEA [None]
  - HYPOXIA [None]
  - LOSS OF CONSCIOUSNESS [None]
  - MULTIPLE DRUG OVERDOSE [None]
  - PULSE ABSENT [None]
  - RENAL INJURY [None]
  - VOMITING [None]
